FAERS Safety Report 13946621 (Version 4)
Quarter: 2018Q3

REPORT INFORMATION
  Report Type: Report from Study
  Country: BR (occurrence: BR)
  Receive Date: 20170907
  Receipt Date: 20180917
  Transmission Date: 20181010
  Serious: Yes (Life-Threatening, Hospitalization, Other)
  Sender: FDA-Public Use
  Company Number: PHHY2017BR129993

PATIENT
  Age: 29 Year
  Sex: Male
  Weight: 94 kg

DRUGS (2)
  1. EXJADE [Suspect]
     Active Substance: DEFERASIROX
     Indication: SICKLE CELL ANAEMIA
     Dosage: 1000 MG, QD
     Route: 048
     Dates: start: 20170512
  2. DESFERAL [Suspect]
     Active Substance: DEFEROXAMINE MESYLATE
     Indication: SICKLE CELL DISEASE
     Route: 058

REACTIONS (7)
  - Bacterial infection [Unknown]
  - Aphasia [Not Recovered/Not Resolved]
  - Haemoglobin decreased [Unknown]
  - Weight decreased [Unknown]
  - Cerebrovascular accident [Unknown]
  - Groin pain [Recovering/Resolving]
  - Serum ferritin increased [Unknown]

NARRATIVE: CASE EVENT DATE: 20150115
